FAERS Safety Report 7378501-6 (Version None)
Quarter: 2011Q1

REPORT INFORMATION
  Report Type: 
  Country: None (occurrence: None)
  Receive Date: 20110323
  Receipt Date: 20110323
  Transmission Date: 20110831
  Serious: Yes (Hospitalization, Other)
  Sender: FDA-Public Use
  Company Number: None

PATIENT
  Age: 24 Year
  Sex: Female
  Weight: 44.4525 kg

DRUGS (1)
  1. ORTHO CYCLEN-28 [Suspect]
     Indication: MENSTRUATION IRREGULAR
     Dosage: ONCE A DAY DAILY PO
     Route: 048
     Dates: start: 20090218, end: 20090517

REACTIONS (1)
  - PULMONARY EMBOLISM [None]
